FAERS Safety Report 4855119-8 (Version None)
Quarter: 2005Q4

REPORT INFORMATION
  Report Type: 
  Country: None (occurrence: None)
  Receive Date: 20051125
  Receipt Date: 20050421
  Transmission Date: 20060501
  Serious: Yes (Hospitalization)
  Sender: FDA-Public Use
  Company Number: US-JNJFOC-20040101640

PATIENT
  Age: 56 Year
  Sex: Female
  Weight: 54.8852 kg

DRUGS (12)
  1. LEVAQUIN [Suspect]
     Indication: SINUSITIS
     Dates: start: 20040102, end: 20040103
  2. ALLEGRA D (ALLEGRA-D) TABLETS [Concomitant]
  3. FLONASE (FLUTICASONE PROPIONATE) SPRAY [Concomitant]
  4. PREVACID [Concomitant]
  5. ALBUTEROL [Concomitant]
  6. ALEVE [Concomitant]
  7. SUDAFED 12 HOUR [Concomitant]
  8. ZETIA (CHOLESTEROL- AND TRIGLYCERIDE REDUCERS) [Concomitant]
  9. PREMARIN [Concomitant]
  10. MULTIVITAMIN [Concomitant]
  11. QVAR INHALER (BECLOMETASONE DIPROPIONATE) [Concomitant]
  12. NASACORT [Concomitant]

REACTIONS (7)
  - DEHYDRATION [None]
  - DIARRHOEA [None]
  - HYPERSENSITIVITY [None]
  - HYPOAESTHESIA [None]
  - HYPONATRAEMIA [None]
  - PAIN [None]
  - VOMITING [None]
